FAERS Safety Report 8273735-0 (Version None)
Quarter: 2012Q2

REPORT INFORMATION
  Report Type: 
  Country: None (occurrence: None)
  Receive Date: 20120411
  Receipt Date: 20120330
  Transmission Date: 20120825
  Serious: Yes (Congenital Anomaly)
  Sender: FDA-Public Use
  Company Number: JP-SANOFI-AVENTIS-2012SA017872

PATIENT
  Age: 1 Day
  Sex: Male
  Weight: 3.38 kg

DRUGS (15)
  1. DEPAS [Concomitant]
     Dates: start: 20110101, end: 20120129
  2. GLUCOSE [Concomitant]
     Dates: start: 20110615, end: 20110616
  3. RITODRINE HYDROCHLORIDE [Concomitant]
     Dates: start: 20111213
  4. ZOLPIDEM [Suspect]
     Indication: FOETAL EXPOSURE DURING PREGNANCY
     Route: 064
     Dates: start: 20110101, end: 20111217
  5. SEROQUEL [Suspect]
     Indication: FOETAL EXPOSURE DURING PREGNANCY
     Route: 064
     Dates: start: 20110101, end: 20111217
  6. ASCORBIC ACID [Concomitant]
     Dates: start: 20110615, end: 20110616
  7. BLONANSERIN [Concomitant]
     Route: 048
     Dates: start: 20110101
  8. ROHYPNOL [Concomitant]
     Dates: start: 20110101
  9. LORAZEPAM [Concomitant]
     Dates: start: 20110101
  10. KAMIKIHITOU [Concomitant]
     Dates: start: 20110101
  11. THIAMINE HYDROCHLORIDE [Concomitant]
     Route: 042
     Dates: start: 20110615, end: 20110616
  12. PRIMPERAN TAB [Suspect]
     Indication: FOETAL EXPOSURE DURING PREGNANCY
     Route: 064
     Dates: start: 20110615, end: 20110616
  13. GLUCOSE [Concomitant]
     Dates: start: 20110615, end: 20110616
  14. CALCIUM CHLORIDE DIHYDRATE AND GLUCOSE AND SODIUM ACETATE AND POTASSIU [Concomitant]
     Dates: start: 20110615, end: 20110616
  15. METOCLOPRAMIDE HCL [Concomitant]

REACTIONS (2)
  - SOMNOLENCE [None]
  - FEEDING DISORDER NEONATAL [None]
